FAERS Safety Report 16332772 (Version 5)
Quarter: 2019Q4

REPORT INFORMATION
  Report Type: Spontaneous
  Country: US (occurrence: US)
  Receive Date: 20190520
  Receipt Date: 20191106
  Transmission Date: 20200122
  Serious: Yes (Hospitalization)
  Sender: FDA-Public Use
  Company Number: US-PFIZER INC-2019208246

PATIENT
  Age: 31 Year
  Sex: Male
  Weight: 65.77 kg

DRUGS (6)
  1. VIAGRA [Suspect]
     Active Substance: SILDENAFIL CITRATE
     Indication: CEREBRAL DISORDER
  2. VIAGRA [Suspect]
     Active Substance: SILDENAFIL CITRATE
     Indication: DEPRESSION
  3. VIAGRA [Suspect]
     Active Substance: SILDENAFIL CITRATE
     Indication: ERECTILE DYSFUNCTION
     Dosage: UNK
     Route: 048
     Dates: start: 1998
  4. VIAGRA [Suspect]
     Active Substance: SILDENAFIL CITRATE
     Indication: MENTAL DISORDER
  5. VIAGRA [Suspect]
     Active Substance: SILDENAFIL CITRATE
     Indication: IMMUNISATION
     Dosage: 25 MG, 1X/DAY
     Route: 048
  6. VIAGRA [Suspect]
     Active Substance: SILDENAFIL CITRATE
     Indication: PAIN
     Dosage: 100 MG, AS NEEDED [1 TABLET BY MOUTH AS NEEDED]
     Route: 048
     Dates: start: 20120906

REACTIONS (2)
  - Intentional product misuse [Recovered/Resolved]
  - Muscle spasticity [Not Recovered/Not Resolved]
